FAERS Safety Report 8457795-X (Version None)
Quarter: 2012Q2

REPORT INFORMATION
  Report Type: 
  Country: None (occurrence: None)
  Receive Date: 20120618
  Receipt Date: 20120618
  Transmission Date: 20120825
  Serious: Yes (Death, Hospitalization)
  Sender: FDA-Public Use
  Company Number: None

PATIENT
  Sex: Female
  Weight: 38.5 kg

DRUGS (2)
  1. CISPLATIN [Suspect]
     Dosage: 63 MG
     Dates: end: 20110523
  2. TAXOL [Suspect]
     Dosage: 221 MG
     Dates: end: 20110523

REACTIONS (2)
  - APLASTIC ANAEMIA [None]
  - RENAL FAILURE [None]
